FAERS Safety Report 18278465 (Version 1)
Quarter: 2020Q3

REPORT INFORMATION
  Report Type: Spontaneous
  Country: JP (occurrence: JP)
  Receive Date: 20200917
  Receipt Date: 20200917
  Transmission Date: 20201103
  Serious: Yes (Hospitalization)
  Sender: FDA-Public Use
  Company Number: JP-FRESENIUS KABI-FK202009180

PATIENT
  Age: 8 Year
  Sex: Female

DRUGS (3)
  1. ATROPINE. [Concomitant]
     Active Substance: ATROPINE
     Indication: ANAESTHESIA
     Route: 065
  2. FENTANYL. [Concomitant]
     Active Substance: FENTANYL
     Indication: ANAESTHESIA
     Route: 065
  3. ROCURONIUM [Suspect]
     Active Substance: ROCURONIUM BROMIDE
     Indication: ANAESTHESIA
     Route: 065

REACTIONS (1)
  - Anaphylactic shock [Recovered/Resolved]
